FAERS Safety Report 5156612-3 (Version None)
Quarter: 2006Q4

REPORT INFORMATION
  Report Type: 
  Country: None (occurrence: None)
  Receive Date: 20061115
  Receipt Date: 20061024
  Transmission Date: 20070319
  Serious: Yes (Death)
  Sender: FDA-Public Use
  Company Number: PAR_0961_2006

PATIENT
  Age: 55 Year

DRUGS (1)
  1. FLUOXETINE [Suspect]
     Dosage: DF PO
     Route: 048

REACTIONS (2)
  - COMPLETED SUICIDE [None]
  - POISONING [None]
